FAERS Safety Report 15730415 (Version 3)
Quarter: 2020Q2

REPORT INFORMATION
  Report Type: Spontaneous
  Country: US (occurrence: US)
  Receive Date: 20181217
  Receipt Date: 20200428
  Transmission Date: 20200713
  Serious: Yes (Other)
  Sender: FDA-Public Use
  Company Number: US-SA-2018SA338368

PATIENT
  Age: 40 Year
  Sex: Female
  Weight: 64.85 kg

DRUGS (7)
  1. DOCETAXEL. [Suspect]
     Active Substance: DOCETAXEL
     Dosage: 178 MG, Q3W
     Route: 042
     Dates: start: 20140910, end: 20140910
  2. ADRIAMYCIN [Concomitant]
     Active Substance: DOXORUBICIN HYDROCHLORIDE
     Dosage: UNK UNK, UNK
     Dates: start: 20140614, end: 20140614
  3. CYTOXAN [Concomitant]
     Active Substance: CYCLOPHOSPHAMIDE
     Dosage: UNK UNK, UNK
     Dates: start: 20140614, end: 20140614
  4. DOCETAXEL. [Suspect]
     Active Substance: DOCETAXEL
     Dosage: 178 MG, Q3W
     Route: 042
     Dates: start: 20141029, end: 20141029
  5. NEOSAR [Concomitant]
     Active Substance: CYCLOPHOSPHAMIDE
     Indication: BREAST CANCER STAGE III
  6. ADRIAMYCIN [Concomitant]
     Active Substance: DOXORUBICIN HYDROCHLORIDE
     Indication: BREAST CANCER STAGE III
     Dosage: UNK UNK, UNK
  7. CYTOXAN [Concomitant]
     Active Substance: CYCLOPHOSPHAMIDE
     Indication: BREAST CANCER STAGE III
     Dosage: UNK UNK, UNK

REACTIONS (6)
  - Emotional distress [Unknown]
  - Impaired quality of life [Unknown]
  - Anxiety [Unknown]
  - Psychological trauma [Unknown]
  - Pain [Unknown]
  - Alopecia [Not Recovered/Not Resolved]

NARRATIVE: CASE EVENT DATE: 20141010
